FAERS Safety Report 10254680 (Version 2)
Quarter: 2014Q3

REPORT INFORMATION
  Report Type: Spontaneous
  Country: FI (occurrence: FI)
  Receive Date: 20140624
  Receipt Date: 20140815
  Transmission Date: 20150326
  Serious: Yes (Other)
  Sender: FDA-Public Use
  Company Number: FI-BAYER-2014-093740

PATIENT
  Age: 0 Year
  Sex: Male

DRUGS (1)
  1. QLAIRA [Suspect]
     Active Substance: DIENOGEST\ESTRADIOL VALERATE
     Route: 064

REACTIONS (6)
  - Cerebral haemorrhage neonatal [None]
  - Low birth weight baby [None]
  - Cerebral infarction [Not Recovered/Not Resolved]
  - Placental transfusion syndrome [None]
  - Foetal exposure during pregnancy [None]
  - Premature baby [None]

NARRATIVE: CASE EVENT DATE: 2014
